FAERS Safety Report 15468284 (Version 2)
Quarter: 2018Q4

REPORT INFORMATION
  Report Type: Other
  Country: NL (occurrence: NL)
  Receive Date: 20181005
  Receipt Date: 20181207
  Transmission Date: 20190204
  Serious: Yes (Other)
  Sender: FDA-Public Use
  Company Number: NL-APOTEX-2018AP021767

PATIENT
  Age: 78 Year
  Sex: Male
  Weight: 80 kg

DRUGS (5)
  1. PANTOZOL [Concomitant]
     Active Substance: PANTOPRAZOLE SODIUM
     Indication: PRODUCT USED FOR UNKNOWN INDICATION
     Dosage: 20 MG, QD, 20 MG DD
     Route: 048
  2. ASCAL                              /00002702/ [Concomitant]
     Active Substance: ASPIRIN CALCIUM
     Indication: PRODUCT USED FOR UNKNOWN INDICATION
     Dosage: UNK
     Route: 048
  3. ACETAMINOPHEN. [Suspect]
     Active Substance: ACETAMINOPHEN
     Indication: PAIN
     Dosage: 1000 MG, QD
     Route: 048
  4. METHOTREXATE. [Suspect]
     Active Substance: METHOTREXATE
     Indication: RHEUMATOID ARTHRITIS
     Dosage: 15 MG, Q.WK., 15 MG/WK
     Route: 058
     Dates: start: 20170606, end: 20170717
  5. FOLIUMZUUR [Concomitant]
     Active Substance: FOLIC ACID
     Indication: PRODUCT USED FOR UNKNOWN INDICATION
     Dosage: 5 MG, Q.WK., 5 MG/WK
     Route: 048
     Dates: start: 20030218

REACTIONS (12)
  - Alanine aminotransferase increased [Not Recovered/Not Resolved]
  - Drug effect decreased [Unknown]
  - Fatigue [Unknown]
  - Gamma-glutamyltransferase increased [Not Recovered/Not Resolved]
  - Vomiting [Unknown]
  - Aspartate aminotransferase increased [Not Recovered/Not Resolved]
  - Hypersomnia [Unknown]
  - Weight decreased [Unknown]
  - Libido decreased [Unknown]
  - Decreased appetite [Unknown]
  - Hepatic function abnormal [Unknown]
  - Product formulation issue [Unknown]

NARRATIVE: CASE EVENT DATE: 20170710
